FAERS Safety Report 14929400 (Version 1)
Quarter: 2018Q2

REPORT INFORMATION
  Report Type: Report from Study
  Country: US (occurrence: US)
  Receive Date: 20180523
  Receipt Date: 20180523
  Transmission Date: 20180711
  Serious: Yes (Hospitalization)
  Sender: FDA-Public Use
  Company Number: US-JNJFOC-20180529111

PATIENT
  Age: 70 Year
  Sex: Female

DRUGS (2)
  1. IMBRUVICA [Concomitant]
     Active Substance: IBRUTINIB
     Indication: CHRONIC LYMPHOCYTIC LEUKAEMIA
     Dosage: 280 MG, QD
     Route: 048
     Dates: start: 20170801, end: 20180423
  2. IMBRUVICA [Suspect]
     Active Substance: IBRUTINIB
     Indication: CHRONIC LYMPHOCYTIC LEUKAEMIA
     Dosage: 280 MG, QD
     Route: 048
     Dates: start: 20180424, end: 2018

REACTIONS (4)
  - Heart rate increased [Unknown]
  - Off label use [Unknown]
  - Infection [Unknown]
  - Incorrect dose administered [Unknown]

NARRATIVE: CASE EVENT DATE: 20180424
